FAERS Safety Report 5347148-5 (Version None)
Quarter: 2007Q2

REPORT INFORMATION
  Report Type: 
  Country: None (occurrence: None)
  Receive Date: 20070509
  Receipt Date: 20060928
  Transmission Date: 20071010
  Serious: Yes (Other)
  Sender: FDA-Public Use
  Company Number: HQWYE376929SEP06

PATIENT
  Age: 50 Year
  Sex: Female
  Weight: 44.49 kg

DRUGS (4)
  1. PROTONIX [Suspect]
     Indication: ABDOMINAL PAIN UPPER
     Dosage: ^ONE DOSE^, INTRAVENOUS
     Route: 042
     Dates: start: 20060925, end: 20060925
  2. PROTONIX [Suspect]
     Indication: ABDOMINAL PAIN UPPER
     Dosage: 40 MG 1X PER 1 DAY, ORAL
     Route: 048
     Dates: start: 20060926, end: 20060926
  3. ALUMINUM HYDROXIDE AND MAGNESIUM TRISILICATE [Concomitant]
  4. HEPARIN [Concomitant]

REACTIONS (1)
  - PANCYTOPENIA [None]
